FAERS Safety Report 6329407-2 (Version None)
Quarter: 2009Q3

REPORT INFORMATION
  Report Type: 
  Country: None (occurrence: None)
  Receive Date: 20090826
  Receipt Date: 20090818
  Transmission Date: 20100115
  Serious: Yes (Hospitalization)
  Sender: FDA-Public Use
  Company Number: A0803820A

PATIENT
  Sex: Female

DRUGS (8)
  1. AVANDIA [Suspect]
     Dosage: 4MG TWICE PER DAY
     Route: 048
  2. STARLIX [Concomitant]
  3. GLUCERNA [Concomitant]
  4. HUMALOG [Concomitant]
  5. LANTUS [Concomitant]
  6. CIPRO [Concomitant]
  7. ZANTAC [Concomitant]
  8. MYLANTA [Concomitant]

REACTIONS (2)
  - ADVERSE EVENT [None]
  - DEATH [None]
